FAERS Safety Report 6380265-X (Version None)
Quarter: 2009Q3

REPORT INFORMATION
  Report Type: 
  Country: None (occurrence: None)
  Receive Date: 20090929
  Receipt Date: 20090916
  Transmission Date: 20100115
  Serious: Yes (Hospitalization, Other)
  Sender: FDA-Public Use
  Company Number: SE-JNJFOC-20090904807

PATIENT
  Weight: 2.5 kg

DRUGS (1)
  1. INFLIXIMAB [Suspect]
     Indication: DRUG EXPOSURE DURING PREGNANCY

REACTIONS (4)
  - BACTERIAL SEPSIS [None]
  - DACRYOCYSTITIS [None]
  - OPHTHALMIA NEONATORUM [None]
  - PREMATURE BABY [None]
